FAERS Safety Report 5633189-7 (Version None)
Quarter: 2008Q1

REPORT INFORMATION
  Report Type: 
  Country: None (occurrence: None)
  Receive Date: 20080215
  Receipt Date: 20080206
  Transmission Date: 20080703
  Serious: Yes (Hospitalization)
  Sender: FDA-Public Use
  Company Number: GXKR2008GB01445

PATIENT
  Age: 71 Year
  Sex: Male

DRUGS (8)
  1. CO-AMOXICLAV (NGX)(AMOXICILLIN, CLAVULANATE) UNKNOWN [Suspect]
     Indication: LOWER RESPIRATORY TRACT INFECTION
     Dosage: 500 MG, TID, ORAL
     Route: 048
     Dates: start: 20071224, end: 20071231
  2. INDAPAMIDE [Suspect]
     Indication: RENAL FAILURE CHRONIC
     Dosage: 4 MG, QD, ORAL
     Route: 048
     Dates: start: 20020101, end: 20080110
  3. INDAPAMIDE [Suspect]
     Indication: RENAL FAILURE CHRONIC
     Dosage: 4 MG, QD, ORAL
     Route: 048
     Dates: start: 20080113
  4. ADCAL (CARBAZOCHROME) [Concomitant]
  5. AMLODIPINE (ALMODIPINE) [Concomitant]
  6. ACETYLSALICYLIC ACID SRT [Concomitant]
  7. BENDROFLUAZIDE (BENDROFLUMETHIAZIDE) [Concomitant]
  8. SYMBICORT [Concomitant]

REACTIONS (3)
  - CHOLELITHIASIS [None]
  - JAUNDICE CHOLESTATIC [None]
  - RENAL IMPAIRMENT [None]
